FAERS Safety Report 4505314-2 (Version None)
Quarter: 2004Q4

REPORT INFORMATION
  Report Type: 
  Country: None (occurrence: None)
  Receive Date: 20041015
  Receipt Date: 20040630
  Transmission Date: 20050328
  Serious: Yes (Other)
  Sender: FDA-Public Use
  Company Number: 2004033214

PATIENT
  Sex: Male
  Weight: 72.5755 kg

DRUGS (14)
  1. NEURONTIN [Suspect]
     Indication: NEUROPATHY
     Dosage: 100 MG (100 MG, DAILY), ORAL
     Route: 048
     Dates: start: 20040429
  2. WARFARIN SODIUM [Concomitant]
  3. TERAZOSIN (TERAZOSIN) [Concomitant]
  4. HYDROCHLOROTHIAZIDE [Concomitant]
  5. ASPIRIN [Concomitant]
  6. LISINOPRIL [Concomitant]
  7. ATENOLOL [Concomitant]
  8. RANITIDINE [Concomitant]
  9. COMBIVENT [Concomitant]
  10. FLUNISOLIDE (FLUNISOLIDE) [Concomitant]
  11. MULTIVITAMINS (ASCORBIC ACID, ERGOCALCIFEROL, FOLIC ACID, NICOTANAMIDE [Concomitant]
  12. LORAZEPAM [Concomitant]
  13. VICODIN [Concomitant]
  14. ESCITALOPRAM (ESCITALOPRAM) [Concomitant]

REACTIONS (9)
  - BLOOD PRESSURE FLUCTUATION [None]
  - BLOOD PRESSURE INCREASED [None]
  - DIZZINESS [None]
  - HEADACHE [None]
  - INSOMNIA [None]
  - MEMORY IMPAIRMENT [None]
  - MUSCLE TWITCHING [None]
  - NAUSEA [None]
  - TINNITUS [None]
